FAERS Safety Report 16702623 (Version 2)
Quarter: 2019Q4

REPORT INFORMATION
  Report Type: Spontaneous
  Country: US (occurrence: US)
  Receive Date: 20190814
  Receipt Date: 20191011
  Transmission Date: 20200122
  Serious: No
  Sender: FDA-Public Use
  Company Number: US-PFIZER INC-2019345504

PATIENT
  Age: 70 Year
  Sex: Female

DRUGS (13)
  1. CELEBREX [Suspect]
     Active Substance: CELECOXIB
     Indication: ARTHRITIS
     Dosage: 100 MG, DAILY [100MG, TAKE ONE CAPSULE BY MOUTH DAILY 100 MG]
     Dates: end: 2018
  2. CELEBREX [Suspect]
     Active Substance: CELECOXIB
     Dosage: 100 MG, DAILY
     Route: 048
     Dates: end: 20190326
  3. VALSARTAN HCTZ [Concomitant]
     Active Substance: HYDROCHLOROTHIAZIDE\VALSARTAN
     Dosage: UNK
  4. HYDROXYZINE [Concomitant]
     Active Substance: HYDROXYZINE HYDROCHLORIDE
     Indication: PRURITUS
     Dosage: 10 MG, 1X/DAY [10MG TABLET ONE TO THREE DAILY SHE USUSALLY TAKES JUST ONE AT NIGHT]
  5. LEVOTHYROXINE. [Concomitant]
     Active Substance: LEVOTHYROXINE
     Indication: THYROID DISORDER
     Dosage: 70MG OR 75 MG
  6. TELMISARTAN HCTZ [Concomitant]
     Active Substance: HYDROCHLOROTHIAZIDE\TELMISARTAN
     Indication: HYPERTENSION
     Dosage: UNK, DAILY [TELMISARTAN (80 MG) HCTZ (25 MG) 1 TABLET BY MOUTH DAILY]
  7. MYRBETRIQ [Concomitant]
     Active Substance: MIRABEGRON
     Indication: DYSURIA
     Dosage: 25 MG, 1X/DAY [25 MG TABLET BY MOUTH ONCE A DAY]
  8. CELEBREX [Suspect]
     Active Substance: CELECOXIB
     Indication: HIP ARTHROPLASTY
     Dosage: 200 MG, DAILY
     Route: 048
     Dates: start: 2002
  9. MYRBETRIQ [Concomitant]
     Active Substance: MIRABEGRON
     Indication: URGE INCONTINENCE
     Dosage: 25 MG, DAILY
  10. FENOFIBRATE. [Concomitant]
     Active Substance: FENOFIBRATE
     Dosage: 145 MG, DAILY [145 MG CAPSULE TAKE ONE BY MOUTH DAILY]
  11. LEVOTHYROXINE. [Concomitant]
     Active Substance: LEVOTHYROXINE
     Dosage: 100 MG, 1X/DAY [100 MG TABLET BY MOUTH ONCE A DAY]
  12. METFORMIN [Concomitant]
     Active Substance: METFORMIN HYDROCHLORIDE
     Indication: DIABETES MELLITUS
     Dosage: 500 MG, 2X/DAY [500MG TAKE ONE IN AM AND ONE PM BY MOUTH DAILY]
     Dates: start: 2002
  13. METFORMIN [Concomitant]
     Active Substance: METFORMIN HYDROCHLORIDE
     Indication: TYPE 2 DIABETES MELLITUS
     Dosage: 500 MG BID (TWICE A DAY)
     Dates: start: 2014

REACTIONS (3)
  - Renal disorder [Not Recovered/Not Resolved]
  - Intentional product misuse [Unknown]
  - Product dispensing error [Unknown]

NARRATIVE: CASE EVENT DATE: 2018
